FAERS Safety Report 5547333-3 (Version None)
Quarter: 2007Q4

REPORT INFORMATION
  Report Type: 
  Country: None (occurrence: None)
  Receive Date: 20071211
  Receipt Date: 20071203
  Transmission Date: 20080405
  Serious: Yes (Other)
  Sender: FDA-Public Use
  Company Number: US-PFIZER INC-2007101786

PATIENT
  Sex: Female
  Weight: 68 kg

DRUGS (2)
  1. AROMASIN [Suspect]
     Indication: BREAST CANCER
     Route: 048
  2. FOSAMAX [Concomitant]
     Route: 048

REACTIONS (3)
  - ANXIETY [None]
  - CONVERSION DISORDER [None]
  - IMPAIRED DRIVING ABILITY [None]
